FAERS Safety Report 6144844-7 (Version None)
Quarter: 2009Q2

REPORT INFORMATION
  Report Type: 
  Country: None (occurrence: None)
  Receive Date: 20090406
  Receipt Date: 20090403
  Transmission Date: 20091009
  Serious: Yes (Other)
  Sender: FDA-Public Use
  Company Number: US-BAYER-200829942NA

PATIENT
  Age: 80 Year
  Sex: Male
  Weight: 60 kg

DRUGS (6)
  1. NEXAVAR [Suspect]
     Indication: HEPATIC NEOPLASM MALIGNANT
     Dosage: TOTAL DAILY DOSE: 800 MG  UNIT DOSE: 200 MG
     Route: 048
     Dates: start: 20080729, end: 20080801
  2. METFORMIN HCL [Concomitant]
  3. KLOR-CON [Concomitant]
  4. HYDROCHLOROTHIAZIDE [Concomitant]
  5. NIFEDIAC [Concomitant]
  6. 81 ASPIRIN [Concomitant]

REACTIONS (11)
  - AGEUSIA [None]
  - ATROPHY [None]
  - BALANCE DISORDER [None]
  - DECREASED APPETITE [None]
  - FATIGUE [None]
  - HEADACHE [None]
  - HYPERSOMNIA [None]
  - NAUSEA [None]
  - NEUROMYOPATHY [None]
  - SENSORIMOTOR DISORDER [None]
  - WEIGHT DECREASED [None]
